FAERS Safety Report 21286760 (Version 2)
Quarter: 2022Q4

REPORT INFORMATION
  Report Type: Spontaneous
  Country: JP (occurrence: JP)
  Receive Date: 20220902
  Receipt Date: 20221021
  Transmission Date: 20230113
  Serious: Yes (Other)
  Sender: FDA-Public Use
  Company Number: JP-shionogi-202209927_SYP_P_1

PATIENT

DRUGS (16)
  1. SYMPROIC [Suspect]
     Active Substance: NALDEMEDINE
     Indication: Product used for unknown indication
     Dosage: 0.2 MILLIGRAM
     Route: 048
  2. OXYCODONE HYDROCHLORIDE [Suspect]
     Active Substance: OXYCODONE HYDROCHLORIDE
     Indication: Cancer pain
     Dosage: 5 MG/TIME, RESCUE DRUG, 1-15TIMES/DAY
     Route: 048
     Dates: start: 20220816, end: 20220818
  3. OXYCODONE HYDROCHLORIDE [Suspect]
     Active Substance: OXYCODONE HYDROCHLORIDE
     Dosage: 5 MG/TIME, RESCUE DRUG, 2-7TIMES/DAY
     Route: 048
     Dates: start: 20220818, end: 20220823
  4. FENTANYL [Suspect]
     Active Substance: FENTANYL
     Indication: Cancer pain
     Dosage: 1 MG, QD
     Route: 062
     Dates: start: 20220816
  5. FENTANYL [Suspect]
     Active Substance: FENTANYL
     Dosage: 1.5 MG, QD
     Route: 062
     Dates: start: 20220818
  6. FENTANYL [Suspect]
     Active Substance: FENTANYL
     Dosage: 2 MG, QD
     Route: 062
     Dates: start: 20220823
  7. CERCINE [Suspect]
     Active Substance: DIAZEPAM
     Indication: Product used for unknown indication
     Dosage: UNK
     Route: 048
  8. CERCINE [Suspect]
     Active Substance: DIAZEPAM
     Dosage: UNK, UNKNOWN
     Route: 048
  9. SODIUM PICOSULFATE MONOHYDRATE [Concomitant]
     Active Substance: SODIUM PICOSULFATE MONOHYDRATE
     Indication: Product used for unknown indication
     Dosage: UNK, UNKNOWN
     Route: 048
  10. POTASSIUM CHLORIDE [Concomitant]
     Active Substance: POTASSIUM CHLORIDE
     Indication: Product used for unknown indication
     Dosage: UNK, UNKNOWN
     Route: 048
  11. AMLODIPINE BESYLATE\ATORVASTATIN CALCIUM [Concomitant]
     Active Substance: AMLODIPINE BESYLATE\ATORVASTATIN CALCIUM
     Indication: Product used for unknown indication
     Dosage: UNK, UNKNOWN
     Route: 048
  12. BISOPROLOL FUMARATE [Concomitant]
     Active Substance: BISOPROLOL FUMARATE
     Indication: Product used for unknown indication
     Dosage: UNK, UNKNOWN
     Route: 048
  13. RABEPRAZOLE SODIUM [Concomitant]
     Active Substance: RABEPRAZOLE SODIUM
     Indication: Product used for unknown indication
     Dosage: UNK, UNKNOWN
     Route: 048
  14. DAYVIGO [Concomitant]
     Active Substance: LEMBOREXANT
     Indication: Product used for unknown indication
     Dosage: UNK, UNKNOWN
     Route: 048
  15. MAGNESIUM OXIDE [Concomitant]
     Active Substance: MAGNESIUM OXIDE
     Indication: Product used for unknown indication
     Dosage: UNK, UNKNOWN
     Route: 048
  16. FENTANYL CITRATE [Concomitant]
     Active Substance: FENTANYL CITRATE
     Indication: Product used for unknown indication
     Dosage: UNK, UNKNOWN
     Route: 042
     Dates: start: 20220721

REACTIONS (1)
  - Urinary retention [Recovered/Resolved]

NARRATIVE: CASE EVENT DATE: 20220823
